FAERS Safety Report 26069126 (Version 1)
Quarter: 2025Q4

REPORT INFORMATION
  Report Type: Spontaneous
  Country: US (occurrence: None)
  Receive Date: 20251119
  Receipt Date: 20251119
  Transmission Date: 20260118
  Serious: Yes (Hospitalization)
  Sender: FDA-CTU
  Company Number: None

PATIENT
  Age: 78 Year
  Sex: Female

DRUGS (1)
  1. IBRANCE [Suspect]
     Active Substance: PALBOCICLIB
     Indication: Breast cancer female
     Dosage: 125MG : QD FOR 21 DAYS ON THEN 7 DAYS OFF ORAL?
     Route: 048

REACTIONS (5)
  - Fatigue [None]
  - Asthenia [None]
  - Spinal operation [None]
  - Mobility decreased [None]
  - Gait inability [None]
